FAERS Safety Report 10009119 (Version 2)
Quarter: 2014Q1

REPORT INFORMATION
  Report Type: Spontaneous
  Country: US (occurrence: US)
  Receive Date: 20140313
  Receipt Date: 20140313
  Transmission Date: 20141002
  Serious: No
  Sender: FDA-Public Use
  Company Number: US-GILEAD-2013-0073701

PATIENT
  Sex: Female

DRUGS (4)
  1. LETAIRIS [Suspect]
     Indication: PRODUCT USED FOR UNKNOWN INDICATION
     Dosage: 5 MG, QD
     Route: 048
     Dates: start: 20121029
  2. SILDENAFIL [Concomitant]
  3. REMODULIN [Concomitant]
  4. REVATIO [Concomitant]

REACTIONS (2)
  - Arthralgia [Unknown]
  - Headache [Unknown]
